FAERS Safety Report 13707164 (Version 1)
Quarter: 2017Q2

REPORT INFORMATION
  Report Type: Spontaneous
  Country: US (occurrence: US)
  Receive Date: 20170630
  Receipt Date: 20170630
  Transmission Date: 20170830
  Serious: No
  Sender: FDA-Public Use
  Company Number: US-TEVA-781830ACC

PATIENT

DRUGS (1)
  1. ARMODAFINIL. [Suspect]
     Active Substance: ARMODAFINIL
     Indication: SLEEP APNOEA SYNDROME

REACTIONS (4)
  - Product substitution issue [Unknown]
  - Dysuria [Unknown]
  - Drug ineffective [Unknown]
  - Somnolence [Unknown]
